FAERS Safety Report 16795891 (Version 1)
Quarter: 2019Q3

REPORT INFORMATION
  Report Type: Spontaneous
  Country: US (occurrence: US)
  Receive Date: 20190722
  Receipt Date: 20190722
  Transmission Date: 20191005
  Serious: Yes (Disabling, Other)
  Sender: FDA-Public Use
  Company Number: None

PATIENT
  Age: 47 Year
  Sex: Male
  Weight: 84.82 kg

DRUGS (9)
  1. ALLI [Concomitant]
     Active Substance: ORLISTAT
  2. ADDERALL [Concomitant]
     Active Substance: AMPHETAMINE ASPARTATE\AMPHETAMINE SULFATE\DEXTROAMPHETAMINE SACCHARATE\DEXTROAMPHETAMINE SULFATE
  3. VYVANSE [Suspect]
     Active Substance: LISDEXAMFETAMINE DIMESYLATE
     Indication: ATTENTION DEFICIT/HYPERACTIVITY DISORDER
     Dosage: ?          QUANTITY:1 PILL DAILY;?
     Route: 048
     Dates: start: 2012
  4. QUETIAPINE. [Concomitant]
     Active Substance: QUETIAPINE
  5. ATOMOXETINE. [Concomitant]
     Active Substance: ATOMOXETINE HYDROCHLORIDE
  6. METHYLPHENIDATE. [Concomitant]
     Active Substance: METHYLPHENIDATE
  7. VYVANSE [Suspect]
     Active Substance: LISDEXAMFETAMINE DIMESYLATE
     Indication: BIPOLAR DISORDER
     Dosage: ?          QUANTITY:1 PILL DAILY;?
     Route: 048
     Dates: start: 2012
  8. VYVANSE [Suspect]
     Active Substance: LISDEXAMFETAMINE DIMESYLATE
     Indication: BINGE EATING
     Dosage: ?          QUANTITY:1 PILL DAILY;?
     Route: 048
     Dates: start: 2012
  9. DEXTROAMPHET SACCHARAT, AMPHET ASPARTATE, DEXTROAMPHET SULFATE AND AMPHET SULFAT [Suspect]
     Active Substance: AMPHETAMINE ASPARTATE\AMPHETAMINE SULFATE\DEXTROAMPHETAMINE SACCHARATE\DEXTROAMPHETAMINE SULFATE
     Route: 048

REACTIONS (11)
  - Dizziness [None]
  - Headache [None]
  - Mental impairment [None]
  - Somnolence [None]
  - Weight increased [None]
  - Syncope [None]
  - Condition aggravated [None]
  - Constipation [None]
  - Peripheral swelling [None]
  - Hypersensitivity [None]
  - Hypotension [None]

NARRATIVE: CASE EVENT DATE: 2012
